FAERS Safety Report 5238229-5 (Version None)
Quarter: 2007Q1

REPORT INFORMATION
  Report Type: 
  Country: None (occurrence: None)
  Receive Date: 20070215
  Receipt Date: 20070207
  Transmission Date: 20070707
  Serious: Yes (Hospitalization, Other)
  Sender: FDA-Public Use
  Company Number: BE-RB-004682-07

PATIENT
  Sex: Male
  Weight: 60.9 kg

DRUGS (8)
  1. TRANSTEC TTS [Suspect]
     Dates: start: 20050603, end: 20050604
  2. TRANSTEC TTS [Suspect]
     Dates: start: 20050510, end: 20050524
  3. TRAMADOL HCL [Concomitant]
  4. ALIZAPRIDE [Concomitant]
  5. ACETAMINOPHEN [Concomitant]
  6. TRAMADOL HCL [Concomitant]
  7. SUNITINIB MALATE [Suspect]
     Dosage: 4 WEEKS ON AND 2 WEEKS OFF
     Dates: start: 20040510, end: 20050510
  8. LEVOFLOXACIN [Concomitant]

REACTIONS (6)
  - ABDOMINAL PAIN [None]
  - DIARRHOEA [None]
  - DYSURIA [None]
  - GASTROENTERITIS [None]
  - PYREXIA [None]
  - VOMITING [None]
